FAERS Safety Report 4969304-8 (Version None)
Quarter: 2006Q2

REPORT INFORMATION
  Report Type: 
  Country: None (occurrence: None)
  Receive Date: 20060411
  Receipt Date: 20060322
  Transmission Date: 20061013
  Serious: Yes (Hospitalization)
  Sender: FDA-Public Use
  Company Number: CH-ROCHE-441290

PATIENT
  Age: 74 Year
  Sex: Male

DRUGS (2)
  1. CAPECITABINE [Suspect]
     Dosage: DOSE GIVEN ON DAYS 1 TO 14 EVERY THREE WEEKS
     Route: 048
     Dates: start: 20051207
  2. GEMZAR [Suspect]
     Dosage: DOSE GIVEN ON DAYS 1 AND 8
     Route: 042
     Dates: start: 20051207

REACTIONS (1)
  - CHOLESTASIS [None]
